FAERS Safety Report 5214983-3 (Version None)
Quarter: 2006Q4

REPORT INFORMATION
  Report Type: 
  Country: None (occurrence: None)
  Receive Date: 20061107
  Receipt Date: 20060717
  Transmission Date: 20070319
  Serious: No
  Sender: FDA-Public Use
  Company Number: 200612598BWH

PATIENT
  Age: 78 Year
  Sex: Male

DRUGS (4)
  1. LEVITRA [Suspect]
     Indication: ERECTILE DYSFUNCTION
     Dosage: 10  MG, BIW, ORAL
     Route: 048
     Dates: start: 20040101
  2. PRILOSEC [Concomitant]
  3. AGGRENOX [Concomitant]
  4. ZOCOR [Concomitant]

REACTIONS (1)
  - DIARRHOEA [None]
